FAERS Safety Report 6567693-4 (Version None)
Quarter: 2010Q1

REPORT INFORMATION
  Report Type: 
  Country: None (occurrence: None)
  Receive Date: 20100203
  Receipt Date: 20100125
  Transmission Date: 20100710
  Serious: Yes (Hospitalization, Other)
  Sender: FDA-Public Use
  Company Number: GB-RANBAXY-2010RR-30305

PATIENT
  Age: 83 Year
  Sex: Female

DRUGS (11)
  1. PARACETAMOL [Suspect]
     Indication: CANCER PAIN
  2. CO-CODAMOL [Suspect]
     Indication: CANCER PAIN
  3. TRAMADOL HCL [Suspect]
     Indication: CANCER PAIN
     Dosage: 50 MG, UNK
  4. CODEINE [Suspect]
     Indication: CANCER PAIN
  5. FENTANYL [Suspect]
     Indication: CANCER PAIN
     Dosage: 200 UG, UNK
     Route: 048
  6. DEXTROMORAMIDE [Suspect]
     Indication: CANCER PAIN
     Dosage: 5 MG, UNK
  7. METHADONE HCL [Suspect]
     Indication: COUGH
     Route: 048
  8. MORPHINE SULFATE [Suspect]
     Indication: CANCER PAIN
     Dosage: 5 MG, UNK
  9. OXYCODONE HCL [Suspect]
     Indication: CANCER PAIN
     Dosage: 2.5 MG, UNK
  10. CELECOXIB [Concomitant]
  11. PAMIDRONIC ACID [Concomitant]
     Route: 042

REACTIONS (1)
  - DRUG HYPERSENSITIVITY [None]
